FAERS Safety Report 18639787 (Version 1)
Quarter: 2020Q4

REPORT INFORMATION
  Report Type: Spontaneous
  Country: US (occurrence: US)
  Receive Date: 20201220
  Receipt Date: 20201220
  Transmission Date: 20210114
  Serious: No
  Sender: FDA-Public Use
  Company Number: NVSC2020US337709

PATIENT
  Age: 65 Year

DRUGS (1)
  1. VOLTAREN [Suspect]
     Active Substance: DICLOFENAC SODIUM
     Indication: ARTHRITIS
     Dosage: UNK
     Route: 065

REACTIONS (5)
  - Product administered at inappropriate site [Unknown]
  - Ulcer [Unknown]
  - Condition aggravated [Unknown]
  - Off label use [Unknown]
  - Therapeutic response unexpected [Unknown]
